FAERS Safety Report 10576092 (Version 2)
Quarter: 2014Q4

REPORT INFORMATION
  Report Type: Spontaneous
  Country: US (occurrence: US)
  Receive Date: 20141111
  Receipt Date: 20141111
  Transmission Date: 20150529
  Serious: Yes (Other)
  Sender: FDA-Public Use
  Company Number: US-BANPHARM-20143199

PATIENT
  Age: 87 Year
  Sex: Female
  Weight: 72.57 kg

DRUGS (4)
  1. BAYER? 81MG ENTERIC ASPIRIN [Concomitant]
  2. ALEVE [Suspect]
     Active Substance: NAPROXEN SODIUM
     Indication: PAIN
     Dosage: 1 DF, PRN,
     Route: 048
  3. ATENOL [Concomitant]
     Active Substance: ATENOLOL
  4. CRESTOR [Concomitant]
     Active Substance: ROSUVASTATIN CALCIUM

REACTIONS (3)
  - Foreign body [Recovered/Resolved]
  - Choking [Recovered/Resolved]
  - Retching [Recovered/Resolved]
